FAERS Safety Report 17899959 (Version 1)
Quarter: 2020Q2

REPORT INFORMATION
  Report Type: Spontaneous
  Country: US (occurrence: US)
  Receive Date: 20200616
  Receipt Date: 20200616
  Transmission Date: 20200714
  Serious: No
  Sender: FDA-Public Use
  Company Number: US-SHIRE-US202019414

PATIENT

DRUGS (1)
  1. VYVANSE [Suspect]
     Active Substance: LISDEXAMFETAMINE DIMESYLATE
     Indication: PRODUCT USED FOR UNKNOWN INDICATION
     Dosage: 70 MILLIGRAM
     Route: 065

REACTIONS (8)
  - Disturbance in attention [Unknown]
  - Sinus disorder [Unknown]
  - Hunger [Unknown]
  - Fatigue [Unknown]
  - Chest pain [Unknown]
  - Product physical issue [Unknown]
  - Feeling abnormal [Unknown]
  - Dyspnoea [Unknown]
